FAERS Safety Report 9193704 (Version 2)
Quarter: 2013Q2

REPORT INFORMATION
  Report Type: Spontaneous
  Country: BE (occurrence: BE)
  Receive Date: 20130327
  Receipt Date: 20130409
  Transmission Date: 20140414
  Serious: Yes (Hospitalization, Other)
  Sender: FDA-Public Use
  Company Number: BE-PFIZER INC-2013095492

PATIENT
  Age: 62 Year
  Sex: Female
  Weight: 54 kg

DRUGS (8)
  1. ECALTA [Suspect]
     Indication: CANDIDA SEPSIS
     Dosage: 200 MG, SINGLE
     Route: 042
     Dates: start: 20130318
  2. ECALTA [Suspect]
     Dosage: 100 MG, 1X/DAY
     Route: 042
     Dates: start: 20130318
  3. ZOLPIDEM [Concomitant]
     Dosage: 10 MG, 1X/DAY
     Route: 048
  4. SIPRALEXA [Concomitant]
     Dosage: 10 MG, 1X/DAY
     Route: 048
  5. SULPIRIDE [Concomitant]
     Dosage: 200 MG, 1X/DAY
     Route: 048
  6. CLOZAN [Concomitant]
     Dosage: 5 MG, 1X/DAY
     Route: 048
  7. KLIOGEST [Concomitant]
     Dosage: UNK
  8. DIFLUCAN [Concomitant]
     Indication: CANDIDA INFECTION
     Dosage: 200 MG, UNK
     Dates: start: 20130317

REACTIONS (2)
  - Pancytopenia [Recovering/Resolving]
  - Thrombocytopenia [Recovering/Resolving]
